FAERS Safety Report 11041473 (Version 5)
Quarter: 2015Q2

REPORT INFORMATION
  Report Type: Spontaneous
  Country: CN (occurrence: CN)
  Receive Date: 20150416
  Receipt Date: 20150608
  Transmission Date: 20150821
  Serious: Yes (Hospitalization, Other)
  Sender: FDA-Public Use
  Company Number: CN-GE HEALTHCARE MEDICAL DIAGNOSTICS-OSCN-PR-1504S-0070

PATIENT
  Age: 43 Year
  Sex: Female

DRUGS (2)
  1. OMNISCAN [Suspect]
     Active Substance: GADODIAMIDE
     Indication: HEPATIC CYST
     Dosage: DOSE NOT REPORTED
     Route: 065
     Dates: start: 20150403, end: 20150403
  2. OMNISCAN [Suspect]
     Active Substance: GADODIAMIDE
     Indication: DIAGNOSTIC PROCEDURE

REACTIONS (5)
  - Hyponatraemia [Recovering/Resolving]
  - Brain oedema [Recovered/Resolved]
  - Coma [Recovered/Resolved]
  - Encephalopathy [Recovering/Resolving]
  - Electrolyte imbalance [Recovering/Resolving]

NARRATIVE: CASE EVENT DATE: 20150403
